FAERS Safety Report 25047476 (Version 1)
Quarter: 2025Q1

REPORT INFORMATION
  Report Type: Spontaneous
  Country: FR (occurrence: FR)
  Receive Date: 20250306
  Receipt Date: 20250306
  Transmission Date: 20250408
  Serious: Yes (Hospitalization)
  Sender: PURDUE
  Company Number: None

PATIENT
  Age: 74 Year
  Sex: Female
  Weight: 95 kg

DRUGS (4)
  1. MORPHINE SULFATE [Suspect]
     Active Substance: MORPHINE SULFATE
     Indication: Pain
     Route: 048
     Dates: start: 20250205, end: 20250205
  2. AMOXICILLIN [Suspect]
     Active Substance: AMOXICILLIN
     Indication: Arthritis bacterial
     Dosage: 1 GRAM, Q8H
     Route: 048
     Dates: start: 20250121, end: 20250210
  3. LEVOFLOXACIN [Suspect]
     Active Substance: LEVOFLOXACIN
     Indication: Arthritis bacterial
     Dosage: 750 MILLIGRAM, DAILY
     Route: 048
     Dates: start: 20250131, end: 20250211
  4. APIXABAN [Suspect]
     Active Substance: APIXABAN
     Indication: Atrial fibrillation
     Dosage: 5 MILLIGRAM
     Route: 048
     Dates: start: 20250127, end: 20250208

REACTIONS (1)
  - Acute kidney injury [Recovering/Resolving]

NARRATIVE: CASE EVENT DATE: 20250206
